FAERS Safety Report 9822815 (Version 1)
Quarter: 2014Q1

REPORT INFORMATION
  Report Type: Spontaneous
  Country: US (occurrence: US)
  Receive Date: 20140116
  Receipt Date: 20140116
  Transmission Date: 20141002
  Serious: Yes (Other)
  Sender: FDA-Public Use
  Company Number: PHEH2014US001050

PATIENT
  Sex: 0

DRUGS (1)
  1. RECLAST [Suspect]
     Dosage: UNK UKN, UNK
     Route: 042

REACTIONS (1)
  - Skeletal injury [Unknown]
